FAERS Safety Report 6424011-X (Version None)
Quarter: 2009Q4

REPORT INFORMATION
  Report Type: 
  Country: None (occurrence: None)
  Receive Date: 20091102
  Receipt Date: 20091028
  Transmission Date: 20100525
  Serious: Yes (Hospitalization)
  Sender: FDA-Public Use
  Company Number: GB-BRISTOL-MYERS SQUIBB COMPANY-14837249

PATIENT
  Age: 83 Year
  Sex: Female

DRUGS (1)
  1. MEGACE [Suspect]

REACTIONS (2)
  - RENAL FAILURE CHRONIC [None]
  - URINARY TRACT INFECTION [None]
